FAERS Safety Report 21473823 (Version 2)
Quarter: 2022Q4

REPORT INFORMATION
  Report Type: Report from Study
  Country: US (occurrence: US)
  Receive Date: 20221018
  Receipt Date: 20221111
  Transmission Date: 20230112
  Serious: Yes (Other)
  Sender: FDA-Public Use
  Company Number: US-BAYER-2022A138933

PATIENT
  Age: 61 Year
  Sex: Male

DRUGS (3)
  1. STIVARGA [Suspect]
     Active Substance: REGORAFENIB
     Indication: Illness
     Dosage: 2 PILLS ONE DAY AND 1 PILL THE NEXT DAY TAKE WHOLE WITH A LOW FAT BREAKFAST
     Route: 048
  2. STIVARGA [Suspect]
     Active Substance: REGORAFENIB
     Indication: Illness
     Dosage: DAILY DOSE 120 MG
     Route: 048
  3. CAPECITABINE [Concomitant]
     Active Substance: CAPECITABINE
     Indication: Colorectal cancer
     Dosage: 200MG ORAL.TAKE 3 TABLETS(1,500 MG) TWICE A DAY ON DAYS 1-14 OF EACH 21 DAY CYCLE
     Route: 048
     Dates: start: 20220408

REACTIONS (16)
  - Blood disorder [Not Recovered/Not Resolved]
  - Fingerprint loss [None]
  - Epistaxis [None]
  - Dysphonia [Not Recovered/Not Resolved]
  - Diarrhoea [Not Recovered/Not Resolved]
  - Headache [Not Recovered/Not Resolved]
  - Fatigue [Not Recovered/Not Resolved]
  - Asthenia [Not Recovered/Not Resolved]
  - Dyspnoea [Not Recovered/Not Resolved]
  - Skin disorder [Not Recovered/Not Resolved]
  - Weight decreased [Not Recovered/Not Resolved]
  - Faeces discoloured [Not Recovered/Not Resolved]
  - Sensitive skin [None]
  - Dental prosthesis placement [None]
  - Inflammation [Not Recovered/Not Resolved]
  - Off label use [None]
